FAERS Safety Report 26122357 (Version 1)
Quarter: 2025Q4

REPORT INFORMATION
  Report Type: Spontaneous
  Country: JP (occurrence: JP)
  Receive Date: 20251204
  Receipt Date: 20251204
  Transmission Date: 20260117
  Serious: Yes (Death)
  Sender: NOVEN
  Company Number: JP-NOVEN PHARMACEUTICALS, INC.-2025-NOV-JP001998

PATIENT
  Age: 43 Year
  Sex: Female

DRUGS (1)
  1. ESTRADIOL [Suspect]
     Active Substance: ESTRADIOL
     Indication: Hormone replacement therapy
     Dosage: 0.72 MG, UNKNOWN
     Route: 062

REACTIONS (1)
  - Endometrial cancer stage III [Fatal]
